FAERS Safety Report 7272233-0 (Version None)
Quarter: 2011Q1

REPORT INFORMATION
  Report Type: 
  Country: None (occurrence: None)
  Receive Date: 20110203
  Receipt Date: 20110124
  Transmission Date: 20110831
  Serious: Yes (Other)
  Sender: FDA-Public Use
  Company Number: PHHY2010JP83716

PATIENT
  Sex: Male
  Weight: 66 kg

DRUGS (10)
  1. INTERFERON ALFA [Concomitant]
     Indication: METASTATIC RENAL CELL CARCINOMA
     Dosage: 300000 IU, UNK
     Route: 048
     Dates: start: 20010701, end: 20020601
  2. GASMOTIN [Concomitant]
     Dosage: 15 MG, UNK
     Route: 048
     Dates: start: 20090201
  3. SUNITINIB MALATE [Concomitant]
     Indication: METASTATIC RENAL CELL CARCINOMA
     Dosage: 50 MG, UNK
     Route: 048
     Dates: start: 20090223, end: 20100727
  4. METHYLCOBALAMIN [Concomitant]
     Dosage: 1500 UG, UNK
     Route: 048
     Dates: start: 20090201
  5. OLMETEC [Concomitant]
     Dosage: 20 MG, UNK
     Route: 048
     Dates: start: 20090201
  6. UFT [Concomitant]
     Indication: METASTATIC RENAL CELL CARCINOMA
     Dosage: 2 DF, UNK
     Route: 048
     Dates: start: 20010701, end: 20020101
  7. INTERFERON ALFA-2B [Concomitant]
     Indication: METASTATIC RENAL CELL CARCINOMA
     Dosage: 3000000 IU, UNK
     Dates: start: 20051201, end: 20080601
  8. PARIET [Concomitant]
     Dosage: 10 MG, UNK
     Route: 048
     Dates: start: 20090201
  9. LASIX [Concomitant]
     Dosage: 40 MG, UNK
     Route: 048
     Dates: start: 20090201
  10. AFINITOR [Suspect]
     Indication: METASTATIC RENAL CELL CARCINOMA
     Dosage: 10 MG, DAILY
     Route: 048
     Dates: start: 20100824, end: 20110124

REACTIONS (3)
  - INTERSTITIAL LUNG DISEASE [None]
  - COUGH [None]
  - ACNE [None]
